FAERS Safety Report 19494520 (Version 8)
Quarter: 2022Q1

REPORT INFORMATION
  Report Type: Report from Study
  Country: US (occurrence: US)
  Receive Date: 20210705
  Receipt Date: 20220328
  Transmission Date: 20220423
  Serious: Yes (Life-Threatening, Hospitalization, Other)
  Sender: FDA-Public Use
  Company Number: NVSC2021US142782

PATIENT
  Age: 38 Year
  Sex: Female

DRUGS (1)
  1. KESIMPTA [Suspect]
     Active Substance: OFATUMUMAB
     Indication: Multiple sclerosis
     Dosage: 20 MG, QMO (BENEATH THE SKIN USUALLY VIA INJECTION)
     Route: 058
     Dates: start: 20210528

REACTIONS (22)
  - Sepsis [Unknown]
  - Pelvic organ prolapse [Recovering/Resolving]
  - Feeling abnormal [Recovering/Resolving]
  - Urinary tract infection [Recovering/Resolving]
  - Memory impairment [Not Recovered/Not Resolved]
  - Multiple sclerosis relapse [Not Recovered/Not Resolved]
  - Neurogenic bladder [Not Recovered/Not Resolved]
  - Full blood count abnormal [Unknown]
  - Platelet count decreased [Unknown]
  - Ageusia [Unknown]
  - Intestinal prolapse [Not Recovered/Not Resolved]
  - Vaginal haemorrhage [Not Recovered/Not Resolved]
  - Weight decreased [Not Recovered/Not Resolved]
  - Neuropathy peripheral [Recovering/Resolving]
  - Lower respiratory tract infection [Unknown]
  - Diaphragmatic hernia [Recovering/Resolving]
  - Rectal prolapse [Recovering/Resolving]
  - Vaginal prolapse [Not Recovered/Not Resolved]
  - Proctitis [Recovering/Resolving]
  - Pericardial cyst [Unknown]
  - Gait disturbance [Unknown]
  - Arthralgia [Recovering/Resolving]

NARRATIVE: CASE EVENT DATE: 20210528
